FAERS Safety Report 9189981 (Version 3)
Quarter: 2013Q3

REPORT INFORMATION
  Report Type: Spontaneous
  Country: US (occurrence: US)
  Receive Date: 20130326
  Receipt Date: 20130830
  Transmission Date: 20140515
  Serious: No
  Sender: FDA-Public Use
  Company Number: US-PFIZER INC-2013094591

PATIENT
  Age: 6 Decade
  Sex: Female

DRUGS (4)
  1. PREMARIN [Suspect]
     Indication: VULVOVAGINAL DRYNESS
     Dosage: 0.5 G, 1X/DAY
     Route: 067
     Dates: start: 20130319
  2. REPLENS [Suspect]
     Indication: VAGINAL DISORDER
     Dosage: UNK, 1X/DAY
     Dates: start: 201302, end: 201303
  3. REPLENS [Suspect]
     Indication: URINARY TRACT DISORDER
  4. BABY ASPIRIN [Concomitant]
     Indication: CARDIAC DISORDER
     Dosage: 81 MG, 1X/DAY

REACTIONS (5)
  - Product quality issue [Unknown]
  - Incorrect dose administered [Unknown]
  - Drug hypersensitivity [Unknown]
  - Vulvovaginal burning sensation [Not Recovered/Not Resolved]
  - Vulvovaginal discomfort [Not Recovered/Not Resolved]
